APPROVED DRUG PRODUCT: QUINAPRIL HYDROCHLORIDE
Active Ingredient: QUINAPRIL HYDROCHLORIDE
Strength: EQ 5MG BASE
Dosage Form/Route: TABLET;ORAL
Application: A076459 | Product #001
Applicant: ACTAVIS ELIZABETH LLC
Approved: Dec 22, 2004 | RLD: No | RS: No | Type: DISCN